FAERS Safety Report 20817508 (Version 1)
Quarter: 2022Q2

REPORT INFORMATION
  Report Type: Spontaneous
  Country: US (occurrence: US)
  Receive Date: 20220512
  Receipt Date: 20220512
  Transmission Date: 20220720
  Serious: Yes (Other)
  Sender: FDA-Public Use
  Company Number: US-Accord-263267

PATIENT
  Sex: Male

DRUGS (2)
  1. HYDROCHLOROTHIAZIDE [Suspect]
     Active Substance: HYDROCHLOROTHIAZIDE
     Indication: Hypertension
     Dosage: DAILY
     Dates: start: 20220409, end: 20220427
  2. LISINOPRIL [Concomitant]
     Active Substance: LISINOPRIL
     Dosage: DAILY

REACTIONS (16)
  - Depressed level of consciousness [Unknown]
  - Dizziness [Not Recovered/Not Resolved]
  - Weight decreased [Unknown]
  - Dyspnoea [Not Recovered/Not Resolved]
  - Palpitations [Unknown]
  - Pollakiuria [Unknown]
  - Feeling abnormal [Not Recovered/Not Resolved]
  - Cold sweat [Unknown]
  - Abdominal pain upper [Unknown]
  - Diverticulum [Unknown]
  - Musculoskeletal pain [Not Recovered/Not Resolved]
  - Malaise [Not Recovered/Not Resolved]
  - Nervousness [Not Recovered/Not Resolved]
  - Nausea [Not Recovered/Not Resolved]
  - Vertigo [Not Recovered/Not Resolved]
  - Pain in extremity [Unknown]

NARRATIVE: CASE EVENT DATE: 20220409
